FAERS Safety Report 15795826 (Version 1)
Quarter: 2019Q1

REPORT INFORMATION
  Report Type: Report from Study
  Country: NL (occurrence: NL)
  Receive Date: 20190107
  Receipt Date: 20190107
  Transmission Date: 20190417
  Serious: Yes (Death, Other)
  Sender: FDA-Public Use
  Company Number: NL-BAXTER-2019BAX000126

PATIENT
  Sex: Male

DRUGS (6)
  1. ADRIAMYCIN [Suspect]
     Active Substance: DOXORUBICIN HYDROCHLORIDE
     Indication: AMYLOIDOSIS
     Dosage: 3 CYCLES OF VAD REGIMEN
     Route: 065
  2. MELPHALAN. [Suspect]
     Active Substance: MELPHALAN
     Indication: STEM CELL TRANSPLANT
     Dosage: HIGH DOSE
     Route: 065
  3. DEXAMETHASONE. [Suspect]
     Active Substance: DEXAMETHASONE
     Indication: AMYLOIDOSIS
     Dosage: 3 CYCLES OF VAD REGIMEN
     Route: 065
  4. MELPHALAN. [Suspect]
     Active Substance: MELPHALAN
     Indication: BONE MARROW CONDITIONING REGIMEN
  5. ENDOXAN I.V., POEDER VOOR OPLOSSING VOOR INJECTIE 200, 500, 750, 1000, [Suspect]
     Active Substance: CYCLOPHOSPHAMIDE
     Indication: AMYLOIDOSIS
     Dosage: CP REGIMEN
     Route: 065
  6. VINCRISTINE [Suspect]
     Active Substance: VINCRISTINE
     Indication: AMYLOIDOSIS
     Dosage: 3 CYCLES OF VAD REGIMEN
     Route: 065

REACTIONS (2)
  - Transformation to acute myeloid leukaemia [Fatal]
  - Myelodysplastic syndrome transformation [Not Recovered/Not Resolved]
